FAERS Safety Report 4962206-2 (Version None)
Quarter: 2006Q2

REPORT INFORMATION
  Report Type: 
  Country: None (occurrence: None)
  Receive Date: 20060404
  Receipt Date: 20060202
  Transmission Date: 20061013
  Serious: Yes (Hospitalization)
  Sender: FDA-Public Use
  Company Number: US-MERCK-0602USA01756

PATIENT
  Age: 58 Year
  Sex: Female
  Weight: 64 kg

DRUGS (4)
  1. VIOXX [Suspect]
     Indication: ARTHRITIS
     Route: 048
     Dates: start: 20031222, end: 20040801
  2. TYLENOL (CAPLET) [Concomitant]
     Route: 048
  3. ZOLOFT [Concomitant]
     Indication: ANXIETY
     Route: 048
     Dates: start: 20040510
  4. ZOLOFT [Concomitant]
     Indication: DEPRESSION
     Route: 048
     Dates: start: 20040510

REACTIONS (5)
  - ANAEMIA [None]
  - ANXIETY [None]
  - DEPRESSION [None]
  - HAEMORRHAGE [None]
  - THROMBOSIS [None]
